FAERS Safety Report 5275786-7 (Version None)
Quarter: 2007Q1

REPORT INFORMATION
  Report Type: 
  Country: None (occurrence: None)
  Receive Date: 20061213
  Receipt Date: 20040308
  Transmission Date: 20070707
  Serious: Yes (Hospitalization, Disabling)
  Sender: FDA-Public Use
  Company Number: 2004UW04388

PATIENT
  Age: 15 Year
  Sex: Male
  Weight: 77.1115 kg

DRUGS (3)
  1. SEROQUEL [Suspect]
     Dosage: 200 MG TID PO
     Route: 048
  2. SEROQUEL [Suspect]
     Dosage: 200 MG DAILY PO
     Route: 048
  3. SEROQUEL [Suspect]
     Dosage: 100 MG DAILY PO
     Route: 048

REACTIONS (5)
  - CONVULSION [None]
  - HYPERTONIA [None]
  - INCONTINENCE [None]
  - INSOMNIA [None]
  - PSYCHOMOTOR HYPERACTIVITY [None]
